FAERS Safety Report 8936070 (Version 1)
Quarter: 2012Q4

REPORT INFORMATION
  Report Type: Spontaneous
  Country: US (occurrence: None)
  Receive Date: 20121128
  Receipt Date: 20121128
  Transmission Date: 20130627
  Serious: Yes (Life-Threatening, Disabling, Other)
  Sender: FDA-Public Use
  Company Number: None

PATIENT
  Age: 46 Year
  Sex: Male
  Weight: 78.47 kg

DRUGS (2)
  1. AVODART [Suspect]
     Indication: PROSTATIC DISORDER
     Dates: start: 20120802, end: 20121101
  2. AVODART [Suspect]
     Indication: SWELLING
     Dates: start: 20120802, end: 20121101

REACTIONS (5)
  - Chest pain [None]
  - Blood urine present [None]
  - Haematochezia [None]
  - Skin disorder [None]
  - Swelling [None]
